FAERS Safety Report 18934948 (Version 1)
Quarter: 2021Q1

REPORT INFORMATION
  Report Type: Spontaneous
  Country: KR (occurrence: KR)
  Receive Date: 20210224
  Receipt Date: 20210224
  Transmission Date: 20210420
  Serious: Yes (Hospitalization, Other)
  Sender: FDA-Public Use
  Company Number: KR-UNIQUE PHARMACEUTICAL LABORATORIES, A DIV. OF JBCPL-2021UNI000010

PATIENT
  Age: 46 Year
  Sex: Male

DRUGS (3)
  1. LORAZEPAM. [Suspect]
     Active Substance: LORAZEPAM
     Indication: BIPOLAR II DISORDER
     Dosage: UNK
     Route: 065
     Dates: start: 201810
  2. LITHIUM CARBONATE. [Suspect]
     Active Substance: LITHIUM CARBONATE
     Indication: BIPOLAR II DISORDER
     Dosage: UNK
     Route: 065
     Dates: start: 201810
  3. ARIPIPRAZOLE. [Suspect]
     Active Substance: ARIPIPRAZOLE
     Indication: BIPOLAR II DISORDER
     Dosage: UNK
     Route: 065
     Dates: start: 201810

REACTIONS (3)
  - Neuroleptic malignant syndrome [Recovering/Resolving]
  - Overdose [Unknown]
  - Toxicity to various agents [Recovering/Resolving]
